FAERS Safety Report 10379509 (Version 3)
Quarter: 2014Q4

REPORT INFORMATION
  Report Type: Spontaneous
  Country: US (occurrence: US)
  Receive Date: 20140812
  Receipt Date: 20141031
  Transmission Date: 20150528
  Serious: No
  Sender: FDA-Public Use
  Company Number: US-009507513-1408USA006226

PATIENT
  Age: 60 Year
  Sex: Male
  Weight: 74.83 kg

DRUGS (7)
  1. DOXYCYCLINE. [Concomitant]
     Active Substance: DOXYCYCLINE
     Indication: SINUSITIS
     Dosage: DAILY DOSAGE-200MG
     Route: 048
     Dates: start: 20140717, end: 20140806
  2. DULERA [Suspect]
     Active Substance: FORMOTEROL FUMARATE DIHYDRATE\MOMETASONE FUROATE
     Indication: ASTHMA
  3. PANTOPRAZOLE [Concomitant]
     Active Substance: PANTOPRAZOLE SODIUM
     Indication: REFLUX LARYNGITIS
     Dosage: DAILY DOSAGE-40 MG
     Route: 048
     Dates: start: 20140717
  4. VENTOLIN [Concomitant]
     Active Substance: ALBUTEROL SULFATE
     Indication: ASTHMA
     Dosage: STRENGTH-20MG/5ML, PRN
     Route: 055
     Dates: start: 20140717
  5. SINGULAIR [Concomitant]
     Active Substance: MONTELUKAST SODIUM
     Indication: ASTHMA
     Dosage: DAILY DOSAGE-10MG
     Route: 048
     Dates: start: 20140717
  6. DULERA [Suspect]
     Active Substance: FORMOTEROL FUMARATE DIHYDRATE\MOMETASONE FUROATE
     Indication: COUGH
     Dosage: TOTAL DAILY DOSE-2 PUFFS BID
     Route: 055
     Dates: start: 20140717, end: 20140807
  7. DEXILANT [Concomitant]
     Active Substance: DEXLANSOPRAZOLE
     Indication: REFLUX LARYNGITIS
     Dosage: DAILY DOSAGE-060 MG
     Route: 048
     Dates: start: 20140717

REACTIONS (3)
  - Muscle spasms [Recovered/Resolved]
  - Trismus [Not Recovered/Not Resolved]
  - Muscle spasms [Not Recovered/Not Resolved]

NARRATIVE: CASE EVENT DATE: 20140718
